FAERS Safety Report 25259519 (Version 1)
Quarter: 2025Q2

REPORT INFORMATION
  Report Type: Spontaneous
  Country: US (occurrence: US)
  Receive Date: 20250501
  Receipt Date: 20250501
  Transmission Date: 20250717
  Serious: Yes (Life-Threatening, Other)
  Sender: PFIZER
  Company Number: US-PFIZER INC-202500090874

PATIENT
  Age: 69 Year
  Sex: Male

DRUGS (9)
  1. NALOXONE HCL [Suspect]
     Active Substance: NALOXONE HYDROCHLORIDE
     Indication: Toxicity to various agents
     Route: 030
  2. NALOXONE HCL [Suspect]
     Active Substance: NALOXONE HYDROCHLORIDE
     Route: 030
  3. NALOXONE HCL [Suspect]
     Active Substance: NALOXONE HYDROCHLORIDE
     Route: 030
  4. NALOXONE HCL [Suspect]
     Active Substance: NALOXONE HYDROCHLORIDE
     Route: 042
  5. PROPOFOL [Concomitant]
     Active Substance: PROPOFOL
     Indication: Sedation
     Route: 042
  6. FENTANYL [Concomitant]
     Active Substance: FENTANYL
     Indication: Sedation
     Route: 042
  7. DEXMEDETOMIDINE [Concomitant]
     Active Substance: DEXMEDETOMIDINE
     Indication: Sedation
     Route: 042
  8. HEROIN [Concomitant]
     Active Substance: DIAMORPHINE
     Dosage: 1.5 BAGS,DAILY VIA INSUFFLATION
  9. BUPRENORPHINE [Concomitant]
     Active Substance: BUPRENORPHINE
     Route: 042

REACTIONS (1)
  - Drug ineffective [Unknown]
